FAERS Safety Report 24617114 (Version 1)
Quarter: 2024Q4

REPORT INFORMATION
  Report Type: Report from Study
  Country: AU (occurrence: AU)
  Receive Date: 20241114
  Receipt Date: 20241114
  Transmission Date: 20250114
  Serious: Yes (Other)
  Sender: TAKEDA
  Company Number: AU-TAKEDA-2024TUS112850

PATIENT
  Sex: Female

DRUGS (2)
  1. FRUQUINTINIB [Suspect]
     Active Substance: FRUQUINTINIB
     Indication: Product used for unknown indication
     Dosage: UNK
  2. FRUQUINTINIB [Suspect]
     Active Substance: FRUQUINTINIB
     Dosage: 1 MILLIGRAM, BID

REACTIONS (11)
  - Metastases to lung [Unknown]
  - Toxicity to various agents [Unknown]
  - Headache [Unknown]
  - Pain [Unknown]
  - Myalgia [Unknown]
  - Lethargy [Unknown]
  - Pyrexia [Unknown]
  - Pleural effusion [Unknown]
  - Rib fracture [Unknown]
  - Musculoskeletal pain [Unknown]
  - Arthralgia [Unknown]
